FAERS Safety Report 6341803-6 (Version None)
Quarter: 2009Q3

REPORT INFORMATION
  Report Type: 
  Country: None (occurrence: None)
  Receive Date: 20090827
  Receipt Date: 20081103
  Transmission Date: 20100115
  Serious: Yes (Other)
  Sender: FDA-Public Use
  Company Number: US-1167756

PATIENT
  Sex: Female

DRUGS (1)
  1. PREDNISOLONE ACETATE [Suspect]
     Dosage: OPHTHALMIC
     Route: 047

REACTIONS (2)
  - EYE IRRITATION [None]
  - MEDICATION RESIDUE [None]
